FAERS Safety Report 7262015-8 (Version None)
Quarter: 2011Q1

REPORT INFORMATION
  Report Type: 
  Country: None (occurrence: None)
  Receive Date: 20110130
  Receipt Date: 20101103
  Transmission Date: 20110831
  Serious: Yes (Hospitalization)
  Sender: FDA-Public Use
  Company Number: US-ABBOTT-10P-163-0683493-00

PATIENT
  Sex: Male

DRUGS (7)
  1. HUMIRA [Suspect]
     Indication: PSORIATIC ARTHROPATHY
     Dates: start: 20080101, end: 20100501
  2. METHOTREXATE [Concomitant]
     Indication: PSORIATIC ARTHROPATHY
  3. ADVAIR [Concomitant]
     Indication: ASTHMA
     Route: 055
  4. HUMIRA [Suspect]
     Dates: start: 20101005
  5. ENBREL [Suspect]
     Indication: PSORIATIC ARTHROPATHY
     Dates: start: 20100501, end: 20100801
  6. ALBUTEROL [Concomitant]
     Indication: ASTHMA
     Dosage: PRN
     Route: 055
  7. ZOLOFT [Concomitant]
     Indication: PANIC ATTACK

REACTIONS (4)
  - DEVICE MALFUNCTION [None]
  - CELLULITIS [None]
  - DRUG INEFFECTIVE [None]
  - PAIN [None]
